FAERS Safety Report 11871417 (Version 1)
Quarter: 2015Q4

REPORT INFORMATION
  Report Type: Spontaneous
  Country: JP (occurrence: JP)
  Receive Date: 20151228
  Receipt Date: 20151228
  Transmission Date: 20160305
  Serious: Yes (Death, Hospitalization)
  Sender: FDA-Public Use
  Company Number: PHHY2015JP166827

PATIENT
  Age: 81 Year
  Sex: Male

DRUGS (1)
  1. PREDNISOLONE. [Suspect]
     Active Substance: PREDNISOLONE
     Indication: MYELODYSPLASTIC SYNDROME
     Dosage: 15 TO 20 MG, QD
     Route: 065

REACTIONS (4)
  - Lung abscess [Unknown]
  - Pneumonia aspiration [Fatal]
  - Systemic candida [Unknown]
  - Infection [Unknown]
